FAERS Safety Report 15657771 (Version 1)
Quarter: 2018Q4

REPORT INFORMATION
  Report Type: Report from Study
  Country: US (occurrence: US)
  Receive Date: 20181126
  Receipt Date: 20181126
  Transmission Date: 20190205
  Serious: No
  Sender: FDA-Public Use
  Company Number: PHEH2018US049945

PATIENT
  Sex: Female

DRUGS (2)
  1. ILARIS [Suspect]
     Active Substance: CANAKINUMAB
     Indication: COLD URTICARIA
     Dosage: 32 MG, EVERY 12 WEEKS
     Route: 058
  2. ILARIS [Suspect]
     Active Substance: CANAKINUMAB
     Indication: URTICARIA THERMAL
     Dosage: 35 MG, UNK
     Route: 058

REACTIONS (2)
  - Incorrect dose administered [Unknown]
  - Product use in unapproved indication [Unknown]
